FAERS Safety Report 23862478 (Version 2)
Quarter: 2024Q3

REPORT INFORMATION
  Report Type: Spontaneous
  Country: ES (occurrence: ES)
  Receive Date: 20240516
  Receipt Date: 20240919
  Transmission Date: 20241017
  Serious: Yes (Hospitalization, Other)
  Sender: AUROBINDO
  Company Number: ES-ROCHE-3457508

PATIENT
  Age: 69 Year
  Sex: Male
  Weight: 79 kg

DRUGS (18)
  1. CARBOPLATIN [Suspect]
     Active Substance: CARBOPLATIN
     Indication: Small cell lung cancer extensive stage
     Dosage: 484.42 MILLIGRAM, ON 31/OCT/2023, HE RECEIVED MOST RECENT DOSE OF STUDY DRUG CARBOPLATIN PRIOR TO AE
     Route: 042
  2. CARBOPLATIN [Suspect]
     Active Substance: CARBOPLATIN
     Dosage: 522.96 MILLIGRAM,ON 31/OCT/2023, RECEIVED THE MOST RECENT DOST OF CARBOPLATIN PRIOR TO AE/SAEDOSE LA
     Route: 042
     Dates: start: 20230830
  3. ATEZOLIZUMAB [Suspect]
     Active Substance: ATEZOLIZUMAB
     Indication: Small cell lung cancer extensive stage
     Dosage: 1200 MILLIGRAM, ON 31/OCT/2023, START DATE OF MOST RECENT DOSE OF STUDY DRUG PRIOR TO AE AND SAEDOSE
     Route: 042
     Dates: start: 20230830
  4. ETOPOSIDE [Suspect]
     Active Substance: ETOPOSIDE
     Indication: Small cell lung cancer extensive stage
     Dosage: 193.5 MILLIGRAM, ON 03/NOV/2023, HE RECEIVED MOST RECENT DOSE OF STUDY DRUG PRIOR TO AE/SAE
     Route: 042
  5. ETOPOSIDE [Suspect]
     Active Substance: ETOPOSIDE
     Dosage: 193.5 MILLIGRAM,ON 03/NOV/2023, RECEIVED THE MOST RECENT DOSE OF ETOPOSIDE PRIOR TO AE//SAE.
     Route: 042
     Dates: start: 20230830
  6. SIMVASTATIN [Concomitant]
     Active Substance: SIMVASTATIN
     Indication: Dyslipidaemia
     Dosage: UNK
     Route: 065
  7. AMLODIPINE [Concomitant]
     Active Substance: AMLODIPINE BESYLATE
     Indication: Hypertension
     Dosage: UNK
     Route: 065
  8. ALLOPURINOL [Concomitant]
     Active Substance: ALLOPURINOL
     Indication: Hyperuricaemia
     Dosage: UNK
     Route: 065
  9. POLYETHYLENE GLYCOLS [Concomitant]
     Active Substance: POLYETHYLENE GLYCOLS
     Indication: Constipation prophylaxis
     Dosage: UNK
     Route: 065
     Dates: start: 20231114
  10. EPLERENONE [Concomitant]
     Active Substance: EPLERENONE
     Indication: Hypertension
     Dosage: UNK
     Route: 065
  11. TAMSULOSIN [Concomitant]
     Active Substance: TAMSULOSIN
     Indication: Hyperuricaemia
     Dosage: UNK
     Route: 065
     Dates: start: 20231113
  12. ENOXAPARIN [Concomitant]
     Active Substance: ENOXAPARIN
     Indication: Prophylaxis
     Dosage: UNK
     Route: 065
     Dates: start: 20231115
  13. CAPTOPRIL [Concomitant]
     Active Substance: CAPTOPRIL
     Indication: Hypertension
     Dosage: UNK
     Route: 065
     Dates: start: 20231114
  14. OMEPRAZOLE [Concomitant]
     Active Substance: OMEPRAZOLE
     Indication: Gastritis prophylaxis
     Dosage: UNK
     Route: 065
     Dates: start: 20231112
  15. MAGNESIUM [Concomitant]
     Active Substance: MAGNESIUM
     Indication: Prophylaxis
     Dosage: UNK
     Route: 065
     Dates: start: 20231111
  16. HUMAN RED BLOOD CELL [Concomitant]
     Active Substance: HUMAN RED BLOOD CELL
     Indication: Anaemia
     Dosage: UNK
     Route: 065
     Dates: start: 20231111, end: 20231111
  17. POTASSIUM [Concomitant]
     Active Substance: POTASSIUM
     Indication: Prophylaxis
     Dosage: UNK
     Route: 065
     Dates: start: 20231111, end: 20231113
  18. POTASSIUM [Concomitant]
     Active Substance: POTASSIUM
     Dosage: UNK
     Route: 065
     Dates: start: 20231117

REACTIONS (1)
  - Febrile neutropenia [Recovered/Resolved]

NARRATIVE: CASE EVENT DATE: 20231111
